FAERS Safety Report 15701772 (Version 2)
Quarter: 2018Q4

REPORT INFORMATION
  Report Type: Spontaneous
  Country: MY (occurrence: MY)
  Receive Date: 20181208
  Receipt Date: 20181220
  Transmission Date: 20190205
  Serious: Yes (Other)
  Sender: FDA-Public Use
  Company Number: MY-ABBVIE-18S-101-2583457-00

PATIENT
  Age: 46 Year
  Sex: Female

DRUGS (4)
  1. VIEKIRAX [Suspect]
     Active Substance: OMBITASVIR\PARITAPREVIR\RITONAVIR
     Indication: CHRONIC HEPATITIS C
     Dosage: DISPENSING ERROR OCCURRED FROM THE PHARMACIST.
     Route: 048
     Dates: start: 20181122, end: 20181205
  2. EXVIERA [Suspect]
     Active Substance: DASABUVIR
     Indication: CHRONIC HEPATITIS C
     Dosage: DISPENSING ERROR OCCURRED FROM THE PHARMACIST.
     Route: 048
     Dates: start: 20181122, end: 20181205
  3. VIEKIRAX [Suspect]
     Active Substance: OMBITASVIR\PARITAPREVIR\RITONAVIR
     Dosage: CORRECT DOSE
     Route: 048
     Dates: start: 20181205
  4. EXVIERA [Suspect]
     Active Substance: DASABUVIR
     Dosage: CORRECT DOSE
     Route: 048
     Dates: start: 20181205

REACTIONS (4)
  - Gastrooesophageal reflux disease [Recovering/Resolving]
  - Incorrect dose administered [Recovered/Resolved]
  - Product dispensing error [Recovered/Resolved]
  - Peripheral swelling [Recovering/Resolving]

NARRATIVE: CASE EVENT DATE: 20181122
